FAERS Safety Report 7337381-5 (Version None)
Quarter: 2011Q1

REPORT INFORMATION
  Report Type: 
  Country: None (occurrence: None)
  Receive Date: 20110222
  Receipt Date: 20110208
  Transmission Date: 20110831
  Serious: Yes (Other)
  Sender: FDA-Public Use
  Company Number: 2011MA001326

PATIENT
  Age: 91 Year
  Sex: Female

DRUGS (8)
  1. ADCAL [Concomitant]
  2. SENNA [Concomitant]
  3. TIOTROPIUM BROMIDE [Concomitant]
  4. LEVOTHYROXINE SODIUM [Concomitant]
  5. BUDESONIDE [Concomitant]
  6. SALBUTAMOL [Concomitant]
  7. TRAMADOL HYDROCHLORIDE [Suspect]
     Indication: BACK PAIN
     Dosage: 100 MG; QD; PO
     Route: 048
  8. FEVERALL [Suspect]
     Dosage: 500 MG; QID

REACTIONS (4)
  - GAMMA-GLUTAMYLTRANSFERASE INCREASED [None]
  - BLOOD BILIRUBIN INCREASED [None]
  - ASPARTATE AMINOTRANSFERASE INCREASED [None]
  - ALANINE AMINOTRANSFERASE INCREASED [None]
